FAERS Safety Report 4676537-7 (Version None)
Quarter: 2005Q2

REPORT INFORMATION
  Report Type: 
  Country: None (occurrence: None)
  Receive Date: 20050526
  Receipt Date: 20050526
  Transmission Date: 20051028
  Serious: Yes (Hospitalization)
  Sender: FDA-Public Use
  Company Number: None

PATIENT
  Sex: Male
  Weight: 101 kg

DRUGS (5)
  1. TEMOZOLOMIDE [Suspect]
     Dosage: 200 MG/M2 DAILY ON DAYS 1-5
  2. RADIATION [Suspect]
  3. DEXAMETHASONE [Concomitant]
  4. DILANTIN [Concomitant]
  5. GABAPENTIN [Concomitant]

REACTIONS (2)
  - GRAND MAL CONVULSION [None]
  - STATUS EPILEPTICUS [None]
